APPROVED DRUG PRODUCT: BENZTROPINE MESYLATE
Active Ingredient: BENZTROPINE MESYLATE
Strength: 1MG
Dosage Form/Route: TABLET;ORAL
Application: A040706 | Product #003
Applicant: OXFORD PHARMACEUTICALS LLC
Approved: Feb 14, 2008 | RLD: No | RS: No | Type: DISCN